FAERS Safety Report 17452045 (Version 1)
Quarter: 2020Q1

REPORT INFORMATION
  Report Type: Spontaneous
  Country: DE (occurrence: DE)
  Receive Date: 20200224
  Receipt Date: 20200224
  Transmission Date: 20200409
  Serious: Yes (Hospitalization)
  Sender: FDA-Public Use
  Company Number: DE-PFIZER INC-2020075625

PATIENT
  Age: 33 Month
  Sex: Male

DRUGS (1)
  1. TAVOR (LORAZEPAM) [Suspect]
     Active Substance: LORAZEPAM
     Dosage: DAILY DOSE: 9 MG EVERY TOTAL 9 SEPARATED DOSES
     Route: 048
     Dates: start: 20191101

REACTIONS (4)
  - Product administration error [Recovered/Resolved]
  - Accidental exposure to product by child [Recovered/Resolved]
  - Fatigue [Recovered/Resolved]
  - Disorientation [Recovered/Resolved]

NARRATIVE: CASE EVENT DATE: 20191101
